FAERS Safety Report 7141299-0 (Version None)
Quarter: 2010Q4

REPORT INFORMATION
  Report Type: 
  Country: None (occurrence: None)
  Receive Date: 20101207
  Receipt Date: 20101201
  Transmission Date: 20110411
  Serious: Yes (Life-Threatening, Other)
  Sender: FDA-Public Use
  Company Number: US-CELGENEUS-163-50794-10111691

PATIENT
  Sex: Male

DRUGS (8)
  1. VIDAZA [Suspect]
     Indication: ACUTE MYELOID LEUKAEMIA
     Route: 051
     Dates: start: 20101018
  2. TRANSFUSION SDP [Concomitant]
     Route: 051
     Dates: start: 20101024, end: 20101024
  3. LEXAPRO [Concomitant]
     Indication: DEPRESSION
     Route: 065
  4. VYTORIN [Concomitant]
     Indication: BLOOD CHOLESTEROL INCREASED
     Route: 065
  5. PREVACID [Concomitant]
     Route: 065
  6. M.V.I. [Concomitant]
     Route: 065
  7. ASPIRIN [Concomitant]
     Indication: CORONARY ARTERY DISEASE
     Route: 065
  8. FOLIC ACID [Concomitant]
     Route: 065

REACTIONS (1)
  - MYOCARDIAL INFARCTION [None]
